FAERS Safety Report 8875214 (Version 1)
Quarter: 2012Q4

REPORT INFORMATION
  Report Type: 
  Country: US (occurrence: US)
  Receive Date: 20121029
  Receipt Date: 20121029
  Transmission Date: 20130627
  Serious: Yes (Hospitalization)
  Sender: FDA-Public Use
  Company Number: US-B.I. PHARMACEUTICALS,INC./RIDGEFIELD-2012-BP-26477BP

PATIENT
  Sex: Female
  Weight: 73 kg

DRUGS (7)
  1. SPIRIVA [Suspect]
     Indication: CHRONIC OBSTRUCTIVE PULMONARY DISEASE
     Dosage: 18 mcg
     Route: 055
     Dates: start: 2011
  2. WARFARIN [Concomitant]
     Indication: ANTICOAGULANT THERAPY
     Route: 048
  3. WARFARIN [Concomitant]
     Indication: CARDIAC DISORDER
  4. HYDROCHLORATHIAZIDE [Concomitant]
     Indication: FLUID RETENTION
     Route: 048
  5. LODIPINE [Concomitant]
     Indication: HYPERTENSION
     Dosage: 35 mg
     Route: 048
  6. LISINOPRIL [Concomitant]
     Indication: HYPERTENSION
     Dosage: 40 mg
     Route: 048
  7. SOTALOL [Concomitant]
     Indication: HYPERTENSION
     Dosage: 160 mg
     Route: 048

REACTIONS (5)
  - Hip fracture [Recovered/Resolved]
  - Fall [Recovered/Resolved]
  - Rash [Not Recovered/Not Resolved]
  - Pruritus [Not Recovered/Not Resolved]
  - Dry skin [Not Recovered/Not Resolved]
